FAERS Safety Report 6032187-1 (Version None)
Quarter: 2008Q4

REPORT INFORMATION
  Report Type: 
  Country: None (occurrence: None)
  Receive Date: 20081229
  Receipt Date: 20081208
  Transmission Date: 20090506
  Serious: Yes (Hospitalization)
  Sender: FDA-Public Use
  Company Number: GAM-217-08-DK

PATIENT
  Age: 64 Year
  Sex: Male

DRUGS (12)
  1. OCTAGAM [Suspect]
     Indication: HYPOGAMMAGLOBULINAEMIA
     Dosage: 40G, IV
     Route: 042
     Dates: start: 20080910, end: 20080910
  2. ACICLODAN(ACICLOVIR) [Concomitant]
  3. DIGOXIN DAK [Concomitant]
  4. FLUCONAZOL STADA (FLUCONAZOLE) [Concomitant]
  5. FURIX (FUROSEMIDE)( [Concomitant]
  6. HJERDYL (ACETYLSALICYLIC ACID) [Concomitant]
  7. POTASSIUM CHLORIDE [Concomitant]
  8. PREDNISOLON DAK (PREDNISOLONE) [Concomitant]
  9. PROGRAF [Concomitant]
  10. SELO-ZOK (METOPROLOL) [Concomitant]
  11. SIMVASTATIN ALTERNOVA (SIMVASTATIN) [Concomitant]
  12. RAMIPRIL [Concomitant]

REACTIONS (4)
  - BACTERIA URINE IDENTIFIED [None]
  - CEREBRAL THROMBOSIS [None]
  - CONFUSIONAL STATE [None]
  - PSEUDOMONAS INFECTION [None]
